FAERS Safety Report 24634263 (Version 1)
Quarter: 2024Q4

REPORT INFORMATION
  Report Type: Spontaneous
  Country: ES (occurrence: ES)
  Receive Date: 20241119
  Receipt Date: 20241119
  Transmission Date: 20250115
  Serious: Yes (Hospitalization)
  Sender: BIOGEN
  Company Number: ES-BIOGEN-2024BI01290656

PATIENT
  Sex: Male

DRUGS (1)
  1. SPINRAZA [Suspect]
     Active Substance: NUSINERSEN
     Indication: Spinal muscular atrophy
     Route: 050
     Dates: start: 201804

REACTIONS (3)
  - Respiratory failure [Unknown]
  - Respiratory tract infection [Unknown]
  - Scoliosis [Unknown]

NARRATIVE: CASE EVENT DATE: 20180101
